FAERS Safety Report 5206478-8 (Version None)
Quarter: 2007Q1

REPORT INFORMATION
  Report Type: 
  Country: None (occurrence: None)
  Receive Date: 20070109
  Receipt Date: 20061227
  Transmission Date: 20070707
  Serious: Yes (Hospitalization)
  Sender: FDA-Public Use
  Company Number: 2006BI017064

PATIENT
  Age: 61 Year
  Sex: Female
  Weight: 100.6985 kg

DRUGS (7)
  1. AVONEX [Suspect]
     Indication: MULTIPLE SCLEROSIS
     Dosage: 30 UG; QW; IM
     Route: 030
     Dates: start: 20010901, end: 20030101
  2. AVONEX [Suspect]
     Indication: MULTIPLE SCLEROSIS
     Dosage: 30 UG; QW; IM
     Route: 030
     Dates: start: 20030101
  3. FUROSEMIDE [Concomitant]
  4. VYTORIN [Concomitant]
  5. PROTONIX [Concomitant]
  6. PREVACID [Concomitant]
  7. METOCLOPRAMIDE [Concomitant]

REACTIONS (10)
  - ASTHENIA [None]
  - BLOOD POTASSIUM INCREASED [None]
  - CONDITION AGGRAVATED [None]
  - DEPRESSION [None]
  - DIABETES MELLITUS NON-INSULIN-DEPENDENT [None]
  - FATIGUE [None]
  - HEART RATE DECREASED [None]
  - HYPERTENSION [None]
  - INITIAL INSOMNIA [None]
  - RENAL IMPAIRMENT [None]
